FAERS Safety Report 15556221 (Version 1)
Quarter: 2018Q4

REPORT INFORMATION
  Report Type: Spontaneous
  Country: US (occurrence: US)
  Receive Date: 20181026
  Receipt Date: 20181026
  Transmission Date: 20190205
  Serious: No
  Sender: FDA-Public Use
  Company Number: US-ALLERGAN-1834818US

PATIENT
  Sex: Female

DRUGS (1)
  1. BRIMONIDINE [Suspect]
     Active Substance: BRIMONIDINE TARTRATE
     Indication: EYELID PTOSIS
     Dosage: 2 GTT, TID
     Route: 047
     Dates: start: 20180630

REACTIONS (2)
  - Off label use [Unknown]
  - Therapeutic response unexpected [Unknown]
